FAERS Safety Report 7642974-1 (Version None)
Quarter: 2011Q3

REPORT INFORMATION
  Report Type: 
  Country: None (occurrence: None)
  Receive Date: 20110728
  Receipt Date: 20110721
  Transmission Date: 20111222
  Serious: Yes (Other)
  Sender: FDA-Public Use
  Company Number: US-BAYER-2011-035934

PATIENT
  Age: 53 Year
  Sex: Female
  Weight: 86.621 kg

DRUGS (8)
  1. TOPICAL OINTMENTS [Concomitant]
     Indication: PSORIASIS
     Dosage: UNK UNK, PRN
     Route: 061
  2. ATENOLOL [Concomitant]
     Dosage: 25 MG, QD
  3. TOPICAL SOLUTIONS [Concomitant]
     Indication: PSORIASIS
     Route: 061
  4. METFORMIN HCL [Concomitant]
     Dosage: 500 MG, QD
  5. AVELOX [Suspect]
     Indication: SINUSITIS
     Dosage: 400 MG, QD
     Route: 048
     Dates: start: 20110406, end: 20110407
  6. LISINOPRIL [Concomitant]
     Dosage: 5 MG, QD
  7. SYNTHROID [Concomitant]
     Dosage: 131 ?G, QD
  8. CELEXA [Concomitant]
     Dosage: 20 MG, QD

REACTIONS (21)
  - PARAESTHESIA [None]
  - URINARY RETENTION [None]
  - HOT FLUSH [None]
  - ERYTHEMA [None]
  - ARTHRALGIA [None]
  - CHEST PAIN [None]
  - GAIT DISTURBANCE [None]
  - DRUG HYPERSENSITIVITY [None]
  - CONSTIPATION [None]
  - MUSCLE DISORDER [None]
  - BALANCE DISORDER [None]
  - DIZZINESS [None]
  - PALPITATIONS [None]
  - MUSCLE STRAIN [None]
  - PAIN IN EXTREMITY [None]
  - MEMORY IMPAIRMENT [None]
  - TENDONITIS [None]
  - BLOOD PRESSURE INCREASED [None]
  - DYSPEPSIA [None]
  - FEELING JITTERY [None]
  - MUSCLE TWITCHING [None]
